FAERS Safety Report 18924600 (Version 3)
Quarter: 2022Q2

REPORT INFORMATION
  Report Type: Spontaneous
  Country: US (occurrence: US)
  Receive Date: 20210222
  Receipt Date: 20220527
  Transmission Date: 20220721
  Serious: No
  Sender: FDA-Public Use
  Company Number: US-PFIZER INC-2021130869

PATIENT
  Sex: Male

DRUGS (2)
  1. PHENELZINE SULFATE [Suspect]
     Active Substance: PHENELZINE SULFATE
     Indication: Depression
     Dosage: UNK
     Dates: start: 2003
  2. PHENELZINE SULFATE [Suspect]
     Active Substance: PHENELZINE SULFATE
     Indication: Anxiety

REACTIONS (1)
  - Drug ineffective [Unknown]
